FAERS Safety Report 8579832-4 (Version None)
Quarter: 2012Q3

REPORT INFORMATION
  Report Type: 
  Country: None (occurrence: None)
  Receive Date: 20120808
  Receipt Date: 20120730
  Transmission Date: 20120928
  Serious: Yes (Other)
  Sender: FDA-Public Use
  Company Number: US-ASTRAZENECA-2012SE54254

PATIENT
  Age: 72 Year
  Sex: Male

DRUGS (1)
  1. NEXIUM [Suspect]
     Route: 048

REACTIONS (7)
  - INTERVERTEBRAL DISC PROTRUSION [None]
  - DEAFNESS [None]
  - FALL [None]
  - POST PROCEDURAL COMPLICATION [None]
  - ARTHRITIS [None]
  - PAIN [None]
  - SPINAL COLUMN STENOSIS [None]
